FAERS Safety Report 4577270-2 (Version None)
Quarter: 2005Q1

REPORT INFORMATION
  Report Type: 
  Country: None (occurrence: None)
  Receive Date: 20050202
  Receipt Date: 20050120
  Transmission Date: 20050727
  Serious: Yes (Hospitalization)
  Sender: FDA-Public Use
  Company Number: 601758

PATIENT
  Age: 66 Year
  Sex: Male
  Weight: 77.1115 kg

DRUGS (3)
  1. GAMMAGARD S/D [Suspect]
     Indication: PERIPHERAL MOTOR NEUROPATHY
     Dosage: 70 GM; BIW; INTRAVENOUS
     Route: 042
     Dates: start: 20041220, end: 20041221
  2. TYLENOL (CAPLET) [Concomitant]
  3. BENADRYL ALLERGY [Concomitant]

REACTIONS (10)
  - CELLULITIS [None]
  - CHILLS [None]
  - DRUG INEFFECTIVE [None]
  - HEADACHE [None]
  - OEDEMA PERIPHERAL [None]
  - PRURITUS [None]
  - RASH GENERALISED [None]
  - SCRATCH [None]
  - SKIN CHAPPED [None]
  - THERMAL BURN [None]
